FAERS Safety Report 4642982-9 (Version None)
Quarter: 2005Q2

REPORT INFORMATION
  Report Type: 
  Country: None (occurrence: None)
  Receive Date: 20050422
  Receipt Date: 20050307
  Transmission Date: 20051028
  Serious: Yes (Other)
  Sender: FDA-Public Use
  Company Number: US-ABBOTT-05P-163-0294878-00

PATIENT
  Age: 16 Year
  Sex: Female

DRUGS (3)
  1. KALETRA [Suspect]
     Indication: HIV INFECTION
     Dosage: 798/198 MG
     Route: 048
     Dates: start: 20040530, end: 20040624
  2. LAMIVUDINE AND ZIDOVUDINE [Suspect]
     Indication: HIV INFECTION
     Dosage: 800/600 MG
     Route: 048
     Dates: start: 20040524
  3. NELFINAVIR MESILATE [Suspect]
     Indication: HIV INFECTION
     Dates: start: 20040624

REACTIONS (2)
  - CAESAREAN SECTION [None]
  - PREMATURE LABOUR [None]
